FAERS Safety Report 18475927 (Version 1)
Quarter: 2020Q4

REPORT INFORMATION
  Report Type: Spontaneous
  Country: CH (occurrence: CH)
  Receive Date: 20201107
  Receipt Date: 20201107
  Transmission Date: 20210114
  Serious: Yes (Other)
  Sender: FDA-Public Use
  Company Number: CH-LUPIN PHARMACEUTICALS INC.-2020-08382

PATIENT
  Age: 39 Year
  Sex: Female

DRUGS (3)
  1. PACLITAXEL. [Suspect]
     Active Substance: PACLITAXEL
     Indication: ADENOSQUAMOUS CARCINOMA OF THE CERVIX
     Dosage: 175 MILLIGRAM/SQ. METER, UNK (FOUR CYCLES)CEVERY 21-DAYS
     Route: 042
  2. CARBOPLATIN. [Suspect]
     Active Substance: CARBOPLATIN
     Indication: ADENOSQUAMOUS CARCINOMA OF THE CERVIX
     Dosage: UNK (FOUR CYCLES)
     Route: 065
  3. BETAMETHASONE. [Suspect]
     Active Substance: BETAMETHASONE
     Indication: MATERNAL THERAPY TO ENHANCE FOETAL LUNG MATURITY
     Dosage: 5 MILLIGRAM, UNK (TWO DOSES, 24 H APART)
     Route: 030

REACTIONS (2)
  - Premature delivery [Unknown]
  - Exposure during pregnancy [Unknown]
